FAERS Safety Report 5419459-6 (Version None)
Quarter: 2007Q3

REPORT INFORMATION
  Report Type: 
  Country: None (occurrence: None)
  Receive Date: 20070820
  Receipt Date: 20070813
  Transmission Date: 20080115
  Serious: Yes (Life-Threatening, Hospitalization)
  Sender: FDA-Public Use
  Company Number: B0483651A

PATIENT
  Age: 52 Year
  Sex: Female

DRUGS (6)
  1. AUGMENTIN '125' [Suspect]
     Indication: BRONCHITIS
     Dosage: 1000MG SINGLE DOSE
     Route: 048
     Dates: start: 20061109, end: 20061109
  2. AMLODIPINE [Concomitant]
     Dosage: 5MG PER DAY
  3. KARDEGIC [Concomitant]
     Dosage: 75MG PER DAY
  4. METFORMINE [Concomitant]
     Dosage: 1G PER DAY
  5. TRIATEC [Concomitant]
  6. METOPROLOL TARTRATE [Concomitant]
     Dosage: 200MG PER DAY

REACTIONS (7)
  - ANAPHYLACTIC SHOCK [None]
  - DIARRHOEA [None]
  - HYPERSENSITIVITY [None]
  - LIP OEDEMA [None]
  - MALAISE [None]
  - PARAESTHESIA [None]
  - URTICARIA [None]
